FAERS Safety Report 13851025 (Version 2)
Quarter: 2017Q4

REPORT INFORMATION
  Report Type: Spontaneous
  Country: US (occurrence: US)
  Receive Date: 20170810
  Receipt Date: 20171011
  Transmission Date: 20180320
  Serious: No
  Sender: FDA-Public Use
  Company Number: US-AMGEN-USASP2017118042

PATIENT
  Age: 47 Year
  Sex: Female

DRUGS (13)
  1. PERCOCET [Concomitant]
     Active Substance: ACETAMINOPHEN\OXYCODONE HYDROCHLORIDE
     Dosage: 10-325 MG, UNK
  2. ADVIL [Concomitant]
     Active Substance: IBUPROFEN
     Dosage: 200 MG, UNK
  3. METHOTREXATE. [Concomitant]
     Active Substance: METHOTREXATE
     Dosage: 2.5 MG, UNK
  4. BACLOFEN. [Concomitant]
     Active Substance: BACLOFEN
     Dosage: 20 MG, UNK
  5. ENBREL [Suspect]
     Active Substance: ETANERCEPT
     Dosage: 50 MG, QWK
     Route: 058
     Dates: end: 201709
  6. FISH OIL [Concomitant]
     Active Substance: FISH OIL
     Dosage: 1000 MG, UNK
  7. VITAMIN B12 [Concomitant]
     Active Substance: CYANOCOBALAMIN
     Dosage: 100 MUG, UNK
  8. GABAPENTIN. [Concomitant]
     Active Substance: GABAPENTIN
     Dosage: 800 MG, UNK
  9. TRAMADOL HCL [Concomitant]
     Active Substance: TRAMADOL HYDROCHLORIDE
     Dosage: 50 MG, UNK
  10. REQUIP [Concomitant]
     Active Substance: ROPINIROLE HYDROCHLORIDE
     Dosage: 0.5 MG, UNK
  11. ENBREL [Suspect]
     Active Substance: ETANERCEPT
     Indication: RHEUMATOID ARTHRITIS
     Dosage: 50 MG, QWK
     Route: 058
     Dates: start: 201510
  12. FOLIC ACID. [Concomitant]
     Active Substance: FOLIC ACID
     Dosage: 20 MG, UNK
  13. METOPROLOL. [Concomitant]
     Active Substance: METOPROLOL
     Dosage: 50 G, UNK

REACTIONS (1)
  - Infection [Not Recovered/Not Resolved]
